FAERS Safety Report 15830464 (Version 1)
Quarter: 2019Q1

REPORT INFORMATION
  Report Type: Spontaneous
  Country: US (occurrence: US)
  Receive Date: 20190115
  Receipt Date: 20190115
  Transmission Date: 20190417
  Serious: No
  Sender: FDA-Public Use
  Company Number: US-SA-2019SA010664

PATIENT
  Sex: Female

DRUGS (3)
  1. ASPIRIN EC [Concomitant]
     Active Substance: ASPIRIN
  2. KRILL OIL [Concomitant]
     Active Substance: DIETARY SUPPLEMENT
  3. PRALUENT [Suspect]
     Active Substance: ALIROCUMAB
     Indication: HYPERLIPIDAEMIA
     Dosage: UNK, QOW
     Route: 058

REACTIONS (2)
  - Nasopharyngitis [Recovered/Resolved]
  - Asthenia [Unknown]
